FAERS Safety Report 12372773 (Version 1)
Quarter: 2016Q2

REPORT INFORMATION
  Report Type: Spontaneous
  Country: US (occurrence: US)
  Receive Date: 20160516
  Receipt Date: 20160516
  Transmission Date: 20160815
  Serious: No
  Sender: FDA-Public Use
  Company Number: US-MDT-ADR-2015-02430

PATIENT
  Age: 53 Year
  Sex: Female

DRUGS (9)
  1. VITAMIN D [Suspect]
     Active Substance: CHOLECALCIFEROL
  2. AMPYRA [Suspect]
     Active Substance: DALFAMPRIDINE
  3. VITAMIN B [Suspect]
     Active Substance: VITAMIN B
  4. MAGNESIUM [Suspect]
     Active Substance: MAGNESIUM
  5. BACLOFEN. [Suspect]
     Active Substance: BACLOFEN
     Route: 048
  6. BACLOFEN. [Suspect]
     Active Substance: BACLOFEN
     Dosage: 113.07MCG/DAY
     Route: 037
  7. AMANTADINE [Suspect]
     Active Substance: AMANTADINE
  8. DIOVAN [Suspect]
     Active Substance: VALSARTAN
  9. GILENYA [Suspect]
     Active Substance: FINGOLIMOD HYDROCHLORIDE

REACTIONS (1)
  - Muscle spasticity [Unknown]

NARRATIVE: CASE EVENT DATE: 201510
